FAERS Safety Report 4680544-8 (Version None)
Quarter: 2005Q2

REPORT INFORMATION
  Report Type: 
  Country: None (occurrence: None)
  Receive Date: 20050601
  Receipt Date: 20050513
  Transmission Date: 20051028
  Serious: Yes (Hospitalization)
  Sender: FDA-Public Use
  Company Number: FR_050506422

PATIENT
  Age: 40 Year
  Sex: Male

DRUGS (3)
  1. GEMZAR [Suspect]
     Indication: ADENOCARCINOMA
     Dosage: 1000 MG/M2/1 OTHER
     Route: 050
     Dates: start: 20050401, end: 20050401
  2. GEMZAR [Suspect]
     Indication: BRONCHIAL CARCINOMA
     Dosage: 1000 MG/M2/1 OTHER
     Route: 050
     Dates: start: 20050401, end: 20050401
  3. CISPLATIN [Concomitant]

REACTIONS (2)
  - ERYTHEMA [None]
  - SKIN TEST POSITIVE [None]
